FAERS Safety Report 4506543-4 (Version None)
Quarter: 2004Q4

REPORT INFORMATION
  Report Type: 
  Country: None (occurrence: None)
  Receive Date: 20041122
  Receipt Date: 20040923
  Transmission Date: 20050328
  Serious: Yes (Hospitalization)
  Sender: FDA-Public Use
  Company Number: 200417234US

PATIENT
  Sex: Female
  Weight: 55.4 kg

DRUGS (15)
  1. KETEK [Suspect]
     Indication: DYSPNOEA
     Dosage: DOSE: SAMPLES
     Route: 048
  2. KETEK [Suspect]
     Indication: OEDEMA
     Dosage: DOSE: SAMPLES
     Route: 048
  3. KETEK [Suspect]
     Indication: WHITE BLOOD CELL COUNT INCREASED
     Dosage: DOSE: SAMPLES
     Route: 048
  4. PREDNISONE [Concomitant]
     Dosage: DOSE: UNK
  5. VIOKASE [Concomitant]
     Dosage: DOSE: UNK
  6. ACTOS [Concomitant]
     Dosage: DOSE: UNK
  7. SYNTHROID [Concomitant]
     Dosage: DOSE: UNK
  8. SINGULAIR [Concomitant]
     Dosage: DOSE: UNK
  9. ACIPHEX [Concomitant]
     Dosage: DOSE: UNK
  10. ATENOLOL [Concomitant]
     Dosage: DOSE: UNK
  11. PLAVIX [Concomitant]
     Dosage: DOSE: UNK
  12. ZOLOFT [Concomitant]
     Dosage: DOSE: UNK
  13. AXID [Concomitant]
     Dosage: DOSE: UNK
  14. VICODIN [Concomitant]
     Dosage: DOSE: UNK
  15. VARIOUS INHALERS [Concomitant]
     Dosage: DOSE: UNK

REACTIONS (2)
  - ADVERSE EVENT [None]
  - REFUSAL OF TREATMENT BY PATIENT [None]
